FAERS Safety Report 11294588 (Version 1)
Quarter: 2015Q2

REPORT INFORMATION
  Report Type: Spontaneous
  Country: US (occurrence: None)
  Receive Date: 20150626
  Receipt Date: 20150626
  Transmission Date: 20150821
  Serious: Yes (Death)
  Sender: FDA-Public Use
  Company Number: 2015010159

PATIENT
  Age: 34 Year
  Sex: Male

DRUGS (9)
  1. MEPROBAMATE (MEPROBAMATE) [Suspect]
     Active Substance: MEPROBAMATE
  2. DIAZEPAM (DIAZEPAM) [Suspect]
     Active Substance: DIAZEPAM
  3. CLONAZEPAM (CLONAZEPAM) [Suspect]
     Active Substance: CLONAZEPAM
  4. OXYCODONE (OXYCODONE) [Suspect]
     Active Substance: OXYCODONE
  5. DIPHENHYDRAMINE (DIPHENHYDRAMINE) [Suspect]
     Active Substance: DIPHENHYDRAMINE
  6. METHADONE [Suspect]
     Active Substance: METHADONE HYDROCHLORIDE
  7. ACETAMINOPHEN (ACETAMINOPHEN) [Concomitant]
     Active Substance: ACETAMINOPHEN
  8. TRAMADOL (TRAMADOL) [Suspect]
     Active Substance: TRAMADOL
  9. CYCLOBENZAPRINE (CYCLOBENZAPRINE) [Suspect]
     Active Substance: CYCLOBENZAPRINE

REACTIONS (1)
  - Drug abuse [None]

NARRATIVE: CASE EVENT DATE: 2013
